FAERS Safety Report 9784961 (Version 2)
Quarter: 2016Q3

REPORT INFORMATION
  Report Type: Report from Study
  Country: GB (occurrence: GB)
  Receive Date: 20131227
  Receipt Date: 20160830
  Transmission Date: 20161109
  Serious: Yes (Other)
  Sender: FDA-Public Use
  Company Number: GB-ROCHE-1326420

PATIENT
  Age: 61 Year
  Sex: Male

DRUGS (10)
  1. PARACETAMOL [Concomitant]
     Active Substance: ACETAMINOPHEN
  2. OMEPRAZOLE. [Concomitant]
     Active Substance: OMEPRAZOLE
  3. CLEXANE [Concomitant]
     Active Substance: ENOXAPARIN SODIUM
  4. SARGRAMOSTIM [Suspect]
     Active Substance: SARGRAMOSTIM
     Indication: PANCREATIC CARCINOMA METASTATIC
     Route: 023
  5. URSODEOXYCHOLIC ACID [Concomitant]
     Active Substance: URSODIOL
  6. CREON [Concomitant]
     Active Substance: PANCRELIPASE AMYLASE\PANCRELIPASE LIPASE\PANCRELIPASE PROTEASE
  7. MENADIOL [Concomitant]
     Active Substance: MENADIOL
  8. GEMCITABINE HYDROCHLORIDE. [Suspect]
     Active Substance: GEMCITABINE HYDROCHLORIDE
     Indication: PANCREATIC CARCINOMA METASTATIC
     Route: 042
  9. MEROPENEM. [Concomitant]
     Active Substance: MEROPENEM
  10. CAPECITABINE. [Suspect]
     Active Substance: CAPECITABINE
     Indication: PANCREATIC CARCINOMA METASTATIC
     Route: 048

REACTIONS (4)
  - Pyrexia [Not Recovered/Not Resolved]
  - Cholangitis [Not Recovered/Not Resolved]
  - Cholangitis [Not Recovered/Not Resolved]
  - Cholecystitis [Not Recovered/Not Resolved]

NARRATIVE: CASE EVENT DATE: 20081204
